FAERS Safety Report 9896063 (Version 1)
Quarter: 2014Q1

REPORT INFORMATION
  Report Type: Spontaneous
  Country: US (occurrence: US)
  Receive Date: 20140213
  Receipt Date: 20140213
  Transmission Date: 20141002
  Serious: No
  Sender: FDA-Public Use
  Company Number: US-BRISTOL-MYERS SQUIBB COMPANY-19029222

PATIENT
  Age: 53 Year
  Sex: Female
  Weight: 99.77 kg

DRUGS (8)
  1. ABATACEPT SUBQ INJECTION 125MG/ML [Suspect]
     Route: 058
  2. PREMPRO [Concomitant]
     Dosage: 1DF:0.625-2.5 UNITS NOS TABS
  3. METHOTREXATE [Concomitant]
  4. HYDROCHLOROTHIAZIDE [Concomitant]
     Dosage: TABS
  5. SYNTHROID [Concomitant]
     Dosage: TABS
  6. TRICOR [Concomitant]
     Dosage: TABS
  7. CARDIZEM [Concomitant]
     Dosage: TABS
  8. PREDNISONE [Concomitant]
     Dosage: TABS

REACTIONS (1)
  - Fatigue [Unknown]
